FAERS Safety Report 10431910 (Version 2)
Quarter: 2014Q3

REPORT INFORMATION
  Report Type: Spontaneous
  Country: JP (occurrence: JP)
  Receive Date: 20140905
  Receipt Date: 20140905
  Transmission Date: 20150326
  Serious: Yes (Death, Other)
  Sender: FDA-Public Use
  Company Number: JP-PFIZER INC-2014137819

PATIENT
  Age: 66 Year
  Sex: Female
  Weight: 62 kg

DRUGS (37)
  1. ALOXI [Concomitant]
     Active Substance: PALONOSETRON HYDROCHLORIDE
     Dosage: UNK
     Dates: start: 20140117, end: 20140117
  2. MAGLAX [Concomitant]
     Active Substance: MAGNESIUM OXIDE
     Dosage: UNK
     Dates: start: 20140118
  3. MYSLEE [Concomitant]
     Active Substance: ZOLPIDEM TARTRATE
     Dosage: UNK
     Dates: start: 20140125, end: 20140125
  4. RED BLOOD CELLS, CONCENTRATED [Concomitant]
     Active Substance: HUMAN RED BLOOD CELL
     Dosage: UNK
     Dates: start: 20140127, end: 20140127
  5. SOLDOL E [Concomitant]
     Dosage: UNK
     Dates: start: 20140117, end: 20140119
  6. PRIMPERAN [Concomitant]
     Active Substance: METOCLOPRAMIDE HYDROCHLORIDE
     Dosage: UNK
     Dates: start: 20140120, end: 20140125
  7. CAMPTO [Suspect]
     Active Substance: IRINOTECAN
     Indication: PANCREATIC CARCINOMA METASTATIC
     Dosage: 289.3 MG, 1X/DAY
     Route: 041
     Dates: start: 20140117, end: 20140117
  8. 5-FU [Suspect]
     Active Substance: FLUOROURACIL
     Indication: PANCREATIC CARCINOMA METASTATIC
     Dosage: 3856.8 MG, D1-2
     Route: 041
     Dates: start: 20140117, end: 20140117
  9. TELEMINSOFT [Concomitant]
     Dosage: UNK
     Dates: start: 20140121, end: 20140121
  10. ROPION [Concomitant]
     Active Substance: FLURBIPROFEN AXETIL
     Dosage: UNK
     Dates: start: 20140126, end: 20140127
  11. LEVOFOLINATE [Concomitant]
     Active Substance: LEVOLEUCOVORIN CALCIUM
     Indication: PANCREATIC CARCINOMA METASTATIC
     Dosage: 200 MG/M2, I.V INFUSION
     Route: 042
     Dates: start: 20140117, end: 20140117
  12. PANTETHINE [Concomitant]
     Active Substance: PANTETHINE
     Dosage: UNK
     Dates: start: 20140117, end: 20140119
  13. URDENACIN [Concomitant]
     Dosage: UNK
     Dates: start: 20140117, end: 20140119
  14. NOVOLIN R [Concomitant]
     Active Substance: INSULIN HUMAN
     Dosage: UNK
     Dates: start: 20140117, end: 20140119
  15. BUSCOPAN [Concomitant]
     Active Substance: BUTYLSCOPOLAMINE BROMIDE
     Dosage: UNK
     Dates: start: 20140117, end: 20140117
  16. ATARAX-P [Concomitant]
     Active Substance: HYDROXYZINE HYDROCHLORIDE
     Dosage: UNK
     Dates: start: 20140125, end: 20140125
  17. SANGLOPOR [Concomitant]
     Active Substance: HUMAN IMMUNOGLOBULIN G
     Dosage: UNK
     Dates: start: 20140126, end: 20140128
  18. DEXART [Concomitant]
     Active Substance: DEXAMETHASONE SODIUM PHOSPHATE
     Dosage: UNK
     Dates: start: 20140117, end: 20140125
  19. NOVAMIN [Concomitant]
     Active Substance: PROCHLORPERAZINE MALEATE
     Dosage: UNK
     Dates: start: 20140117, end: 20140125
  20. DEPAS [Concomitant]
     Active Substance: ETIZOLAM
     Dosage: UNK
     Dates: start: 20140117, end: 20140119
  21. PARIET [Concomitant]
     Active Substance: RABEPRAZOLE SODIUM
     Dosage: UNK
     Dates: start: 20140120
  22. MAXIPIME [Concomitant]
     Active Substance: CEFEPIME HYDROCHLORIDE
     Dosage: UNK
     Dates: start: 20140125, end: 20140127
  23. MIRACLID [Concomitant]
     Active Substance: ULINASTATIN
     Dosage: UNK
     Dates: start: 20140129, end: 20140131
  24. NOVAMIN [Concomitant]
     Active Substance: PROCHLORPERAZINE MALEATE
     Dosage: UNK
     Dates: start: 20140123, end: 20140124
  25. SOLANAX [Concomitant]
     Active Substance: ALPRAZOLAM
     Dosage: UNK
     Dates: start: 20140123, end: 20140123
  26. SANDOSTATIN [Concomitant]
     Active Substance: OCTREOTIDE ACETATE
     Dosage: UNK
     Dates: start: 20140127, end: 20140201
  27. FINIBAX [Concomitant]
     Active Substance: DORIPENEM MONOHYDRATE
     Dosage: UNK
     Dates: start: 20140127, end: 20140201
  28. ELPLAT [Suspect]
     Active Substance: OXALIPLATIN
     Indication: PANCREATIC CARCINOMA METASTATIC
     Dosage: 136.6 MG, 1X/DAY
     Route: 041
     Dates: start: 20140117, end: 20140117
  29. EMEND [Concomitant]
     Active Substance: APREPITANT
     Dosage: UNK
     Dates: start: 20140117, end: 20140119
  30. PRIMPERAN [Concomitant]
     Active Substance: METOCLOPRAMIDE HYDROCHLORIDE
     Dosage: UNK
     Dates: start: 20140117, end: 20140129
  31. LOXOPROFEN [Concomitant]
     Active Substance: LOXOPROFEN
     Dosage: UNK
     Dates: start: 20140119, end: 20140124
  32. GRAN [Concomitant]
     Active Substance: FILGRASTIM
     Dosage: UNK
     Dates: start: 20140125, end: 20140128
  33. PANTOL [Concomitant]
     Active Substance: DEXPANTHENOL
     Dosage: UNK
     Dates: start: 20140127, end: 20140201
  34. LASIX [Concomitant]
     Active Substance: FUROSEMIDE
     Dosage: UNK
     Dates: start: 20140127
  35. SOLDACTONE [Concomitant]
     Active Substance: CANRENOATE POTASSIUM
     Dosage: UNK
     Dates: start: 20140127, end: 20140127
  36. HANP [Concomitant]
     Active Substance: CARPERITIDE
     Dosage: UNK
     Dates: start: 20140129, end: 20140130
  37. DALACIN-S [Concomitant]
     Active Substance: CLINDAMYCIN\CLINDAMYCIN PHOSPHATE
     Dosage: UNK
     Dates: start: 20140130, end: 20140201

REACTIONS (8)
  - Disease progression [Fatal]
  - Ileus [Recovering/Resolving]
  - Pneumonia aspiration [Fatal]
  - Febrile neutropenia [Recovered/Resolved]
  - Diarrhoea [Recovered/Resolved]
  - Pancreatic carcinoma metastatic [Fatal]
  - Pancytopenia [Fatal]
  - Respiratory failure [Fatal]

NARRATIVE: CASE EVENT DATE: 20140117
